FAERS Safety Report 8113932-8 (Version None)
Quarter: 2012Q1

REPORT INFORMATION
  Report Type: 
  Country: None (occurrence: None)
  Receive Date: 20120203
  Receipt Date: 20120131
  Transmission Date: 20120608
  Serious: Yes (Other)
  Sender: FDA-Public Use
  Company Number: US-PFIZER INC-2012026660

PATIENT
  Sex: Female
  Weight: 102.4 kg

DRUGS (5)
  1. HYDROCHLOROTHIAZIDE [Concomitant]
     Indication: HYPERTENSION
     Dosage: 25 MG, UNK
  2. LYRICA [Suspect]
     Indication: NEUROPATHY PERIPHERAL
     Dosage: 75 MG, 1X/DAY
     Route: 048
     Dates: start: 20110101
  3. TRAMADOL [Concomitant]
     Indication: BACK PAIN
     Dosage: UNK
     Dates: end: 20110801
  4. ACETYLSALICYLIC ACID [Concomitant]
     Dosage: 81 MG, UNK
  5. NAPROXEN [Concomitant]
     Indication: BACK PAIN
     Dosage: UNK

REACTIONS (2)
  - FALL [None]
  - OEDEMA PERIPHERAL [None]
